FAERS Safety Report 20572886 (Version 2)
Quarter: 2022Q1

REPORT INFORMATION
  Report Type: Spontaneous
  Country: US (occurrence: US)
  Receive Date: 20220309
  Receipt Date: 20220315
  Transmission Date: 20220424
  Serious: Yes (Life-Threatening, Hospitalization, Other)
  Sender: FDA-Public Use
  Company Number: US-sptaiwan-2022SUN000678

PATIENT
  Age: 49 Year
  Sex: Male
  Weight: 180 kg

DRUGS (2)
  1. LATUDA [Suspect]
     Active Substance: LURASIDONE HYDROCHLORIDE
     Indication: Affective disorder
     Dosage: 20 MG
     Route: 048
     Dates: start: 202106, end: 202110
  2. LATUDA [Suspect]
     Active Substance: LURASIDONE HYDROCHLORIDE
     Dosage: 40 MG
     Route: 048
     Dates: start: 202110, end: 202202

REACTIONS (10)
  - Hallucination, visual [Recovered/Resolved]
  - Pyrexia [Recovered/Resolved]
  - Heart rate irregular [Recovered/Resolved]
  - Hallucination [Recovered/Resolved]
  - Heart rate decreased [Recovered/Resolved]
  - Blood pressure decreased [Recovered/Resolved]
  - COVID-19 [Recovered/Resolved]
  - Hypertension [Recovered/Resolved]
  - Neuroleptic malignant syndrome [Unknown]
  - Off label use [Unknown]

NARRATIVE: CASE EVENT DATE: 20210601
